FAERS Safety Report 22762620 (Version 6)
Quarter: 2025Q1

REPORT INFORMATION
  Report Type: Spontaneous
  Country: US (occurrence: US)
  Receive Date: 20230728
  Receipt Date: 20250109
  Transmission Date: 20250409
  Serious: No
  Sender: ELI LILLY AND COMPANY
  Company Number: US-ELI_LILLY_AND_COMPANY-US202307016133

PATIENT
  Age: 57 Year
  Sex: Female

DRUGS (4)
  1. VERZENIO [Suspect]
     Active Substance: ABEMACICLIB
     Indication: Breast cancer
     Route: 048
     Dates: start: 202206
  2. VERZENIO [Suspect]
     Active Substance: ABEMACICLIB
     Dosage: 50 MG, BID
     Route: 048
     Dates: start: 20230704
  3. VERZENIO [Suspect]
     Active Substance: ABEMACICLIB
     Route: 048
     Dates: end: 202406
  4. VERZENIO [Suspect]
     Active Substance: ABEMACICLIB
     Route: 048

REACTIONS (11)
  - Taste disorder [Not Recovered/Not Resolved]
  - Ageusia [Not Recovered/Not Resolved]
  - Dry eye [Unknown]
  - Swelling [Not Recovered/Not Resolved]
  - Parosmia [Unknown]
  - Anosmia [Not Recovered/Not Resolved]
  - Lung infiltration [Not Recovered/Not Resolved]
  - Cough [Not Recovered/Not Resolved]
  - Constipation [Recovering/Resolving]
  - Alopecia [Unknown]
  - Diarrhoea [Recovering/Resolving]

NARRATIVE: CASE EVENT DATE: 20220701
